FAERS Safety Report 18667148 (Version 1)
Quarter: 2020Q4

REPORT INFORMATION
  Report Type: Report from Study
  Country: HU (occurrence: HU)
  Receive Date: 20201228
  Receipt Date: 20201228
  Transmission Date: 20210114
  Serious: Yes (Hospitalization)
  Sender: FDA-Public Use
  Company Number: HU-JNJFOC-20200211891

PATIENT
  Age: 73 Year
  Sex: Female
  Weight: 71 kg

DRUGS (18)
  1. CLOPIDOGREL [Concomitant]
     Active Substance: CLOPIDOGREL BISULFATE
     Indication: ANTIPHOSPHOLIPID SYNDROME
     Route: 048
     Dates: start: 20180222
  2. VITAMIN D3 [Concomitant]
     Active Substance: CHOLECALCIFEROL
     Indication: OSTEOPOROSIS PROPHYLAXIS
     Dosage: (CHOLECALCIFEROL 3000 IU /0.075 MG
     Route: 048
     Dates: start: 20180222
  3. DELAGIL [Concomitant]
     Active Substance: CHLOROQUINE PHOSPHATE
     Indication: SYSTEMIC LUPUS ERYTHEMATOSUS
     Route: 048
     Dates: start: 20180619
  4. PLACEBO [Suspect]
     Active Substance: UNSPECIFIED INGREDIENT
     Route: 058
     Dates: start: 20190904
  5. PLACEBO [Suspect]
     Active Substance: UNSPECIFIED INGREDIENT
     Route: 058
     Dates: start: 20191223
  6. VALONGIX [Concomitant]
     Active Substance: AMLODIPINE\ATORVASTATIN\PERINDOPRIL
     Indication: HYPERTENSION
     Dosage: VALONGIX 20/5/5 MG IN THE EVENING (ATORVASTATIN 20 MG + PERINDOPRIL ARGININE 5 MG + AMLODIPINE 5 MG)
     Route: 048
     Dates: start: 20180619
  7. CARDURAXL [Concomitant]
     Active Substance: DOXAZOSIN MESYLATE
     Indication: HYPERTENSION
     Route: 048
     Dates: start: 20191030
  8. VALONGIX [Concomitant]
     Active Substance: AMLODIPINE\ATORVASTATIN\PERINDOPRIL
     Indication: DYSLIPIDAEMIA
  9. TENAXUM [Concomitant]
     Active Substance: RILMENIDINE
     Indication: HYPERTENSION
     Route: 048
     Dates: start: 20190320, end: 20190515
  10. PLACEBO [Suspect]
     Active Substance: UNSPECIFIED INGREDIENT
     Route: 058
     Dates: start: 20190710
  11. PLACEBO [Suspect]
     Active Substance: UNSPECIFIED INGREDIENT
     Route: 058
     Dates: start: 20190515
  12. PLACEBO [Suspect]
     Active Substance: UNSPECIFIED INGREDIENT
     Route: 058
     Dates: start: 20191030
  13. BETALOC                            /00376902/ [Concomitant]
     Active Substance: METOPROLOL TARTRATE
     Indication: HYPERTENSION
     Dosage: (METOPROLOL TARTRATE 50 MG)
     Route: 048
  14. THEOSPIREX                         /00012201/ [Concomitant]
     Active Substance: THEOPHYLLINE
     Indication: DYSPNOEA EXERTIONAL
     Route: 048
     Dates: start: 20191223
  15. COSOPT [Concomitant]
     Active Substance: DORZOLAMIDE HYDROCHLORIDE\TIMOLOL MALEATE
     Indication: GLAUCOMA
     Dosage: DORZOLAMIDE HYDROCHLORIDE 20 MG + TIMOLOL MALEATE 5 MG/ML
     Route: 047
     Dates: start: 20160915
  16. TENAXUM [Concomitant]
     Active Substance: RILMENIDINE
     Route: 048
     Dates: start: 20190516
  17. PLACEBO [Suspect]
     Active Substance: UNSPECIFIED INGREDIENT
     Indication: SYSTEMIC LUPUS ERYTHEMATOSUS
     Route: 058
     Dates: start: 20190320
  18. COVERCARD PLUS [Concomitant]
     Active Substance: AMLODIPINE BESYLATE\INDAPAMIDE\PERINDOPRIL ARGININE
     Indication: HYPERTENSION
     Dosage: 5/1.25/5 MG IN THE MORNING (PERINDOPRIL ARGININE 5 MG + INDAPAMIDE 1.25 MG + AMLODIPINE 5 MG)
     Route: 048
     Dates: start: 20180619

REACTIONS (1)
  - Urinary tract infection [Recovered/Resolved]

NARRATIVE: CASE EVENT DATE: 20200204
